FAERS Safety Report 25680763 (Version 1)
Quarter: 2025Q3

REPORT INFORMATION
  Report Type: Spontaneous
  Country: EU (occurrence: EU)
  Receive Date: 20250814
  Receipt Date: 20250814
  Transmission Date: 20251021
  Serious: Yes (Other)
  Sender: GLENMARK
  Company Number: EU-TEVA-805129ROM

PATIENT
  Age: 25 Year
  Sex: Male

DRUGS (10)
  1. DIMETHYL FUMARATE [Suspect]
     Active Substance: DIMETHYL FUMARATE
     Indication: Relapsing-remitting multiple sclerosis
     Dosage: 120 MILLIGRAM, QD (120 MILLIGRAM DAILY; FOR 7 DAYS FOLLOWED BY 120 MG TWICE A DAY FOR 7 DAYS || DOSI
     Route: 065
     Dates: start: 201510
  2. DIMETHYL FUMARATE [Suspect]
     Active Substance: DIMETHYL FUMARATE
     Dosage: 120 MILLIGRAM, BID (120 MILLIGRAM DAILY; FOR 7 DAYS FOLLOWED BY 120 MG TWICE A DAY FOR 7 DAYS || DOS
     Route: 065
  3. DIMETHYL FUMARATE [Suspect]
     Active Substance: DIMETHYL FUMARATE
     Route: 065
  4. DIMETHYL FUMARATE [Suspect]
     Active Substance: DIMETHYL FUMARATE
     Dosage: 360MILLIGRAM, QD (120MG IN THE MORNING AND 240MG IN THE AFTERNOON FOR 14 DAYS) (ROUTE: DESCONOCIDA)
     Route: 065
  5. DIMETHYL FUMARATE [Suspect]
     Active Substance: DIMETHYL FUMARATE
     Route: 065
  6. DIMETHYL FUMARATE [Suspect]
     Active Substance: DIMETHYL FUMARATE
     Dosage: 360 MILLIGRAM, QD (120MG IN THE MORNING AND 240MG IN THE AFTERNOON FOR 14 DAYS) (DESCONOCIDA)
     Route: 065
  7. DIMETHYL FUMARATE [Suspect]
     Active Substance: DIMETHYL FUMARATE
     Dosage: 240 MILLIGRAM, BID (240 MG TWICE A DAY) (ROUTE: DESCONOCIDA)
     Route: 065
  8. DIMETHYL FUMARATE [Suspect]
     Active Substance: DIMETHYL FUMARATE
     Route: 065
  9. OMEPRAZOLE [Suspect]
     Active Substance: OMEPRAZOLE
     Indication: Gastrointestinal disorder
     Route: 065
  10. OMEPRAZOLE [Suspect]
     Active Substance: OMEPRAZOLE
     Indication: Flushing
     Route: 065

REACTIONS (4)
  - Leukocytosis [Recovered/Resolved]
  - Gastrointestinal disorder [Unknown]
  - Eosinophilia [Recovered/Resolved]
  - Flushing [Unknown]
